FAERS Safety Report 7386714-2 (Version None)
Quarter: 2011Q1

REPORT INFORMATION
  Report Type: 
  Country: None (occurrence: None)
  Receive Date: 20110331
  Receipt Date: 20110329
  Transmission Date: 20110831
  Serious: Yes (Other)
  Sender: FDA-Public Use
  Company Number: JP-PFIZER INC-2011070010

PATIENT
  Age: 77 Year
  Sex: Male

DRUGS (5)
  1. METHYCOBAL [Concomitant]
     Indication: POST HERPETIC NEURALGIA
     Dosage: UNK
     Route: 048
     Dates: start: 20110208
  2. AMLODIPINE [Concomitant]
     Indication: HYPERTENSION
     Dosage: UNK
     Route: 048
  3. LYRICA [Suspect]
     Indication: POST HERPETIC NEURALGIA
     Dosage: 75 MG, 2X/DAY
     Route: 048
     Dates: start: 20110208
  4. LOXONIN [Concomitant]
     Indication: POST HERPETIC NEURALGIA
     Dosage: UNK
     Route: 048
     Dates: start: 20110208
  5. THYRADIN [Concomitant]
     Indication: AUTOIMMUNE THYROIDITIS
     Dosage: UNK
     Route: 048

REACTIONS (4)
  - HAEMORRHAGE SUBCUTANEOUS [None]
  - OEDEMA [None]
  - URINE OUTPUT DECREASED [None]
  - WEIGHT INCREASED [None]
